FAERS Safety Report 5191787-1 (Version None)
Quarter: 2006Q4

REPORT INFORMATION
  Report Type: 
  Country: None (occurrence: None)
  Receive Date: 20061220
  Receipt Date: 20061207
  Transmission Date: 20070319
  Serious: Yes (Hospitalization)
  Sender: FDA-Public Use
  Company Number: 2006BI015768

PATIENT
  Age: 59 Year
  Sex: Female
  Weight: 53.0709 kg

DRUGS (12)
  1. AVONEX [Suspect]
     Indication: MULTIPLE SCLEROSIS
     Dosage: 30 UG; QW; IM
     Route: 030
     Dates: start: 20050901
  2. VITAMINS NOS [Concomitant]
  3. ASCORBIC ACID [Concomitant]
  4. VITAMIN B6 [Concomitant]
  5. VITAMIN B-12 [Concomitant]
  6. WELLBUTRIN [Concomitant]
  7. BUSPAR [Concomitant]
  8. CRANBERRY PILLS [Concomitant]
  9. KLONOPIN [Concomitant]
  10. DETROL [Concomitant]
  11. BACLOFEN [Concomitant]
  12. NEURONTIN [Concomitant]

REACTIONS (9)
  - ANTIBODY TEST ABNORMAL [None]
  - CARDIAC DISORDER [None]
  - DEPRESSED LEVEL OF CONSCIOUSNESS [None]
  - DEPRESSION [None]
  - FALL [None]
  - JOINT INJURY [None]
  - LOCALISED OEDEMA [None]
  - MULTIPLE SCLEROSIS [None]
  - SUICIDAL IDEATION [None]
